FAERS Safety Report 21256036 (Version 2)
Quarter: 2022Q3

REPORT INFORMATION
  Report Type: Spontaneous
  Country: JP (occurrence: JP)
  Receive Date: 20220825
  Receipt Date: 20220913
  Transmission Date: 20221027
  Serious: Yes (Death, Other)
  Sender: FDA-Public Use
  Company Number: JP-TAKEDA-2022TJP070921

PATIENT
  Age: 49 Year
  Sex: Male

DRUGS (2)
  1. ENTYVIO [Suspect]
     Active Substance: VEDOLIZUMAB
     Indication: Crohn^s disease
     Dosage: UNK
     Route: 050
     Dates: start: 202010
  2. USTEKINUMAB [Concomitant]
     Active Substance: USTEKINUMAB
     Indication: Crohn^s disease
     Dosage: UNK
     Dates: start: 201705

REACTIONS (8)
  - Disseminated intravascular coagulation [Fatal]
  - Septic shock [Fatal]
  - Acute respiratory distress syndrome [Unknown]
  - Respiratory failure [Unknown]
  - Abscess intestinal [Unknown]
  - Pneumonia [Unknown]
  - Pneumonia cytomegaloviral [Unknown]
  - Therapeutic product effect incomplete [Unknown]
